FAERS Safety Report 9869584 (Version 1)
Quarter: 2014Q1

REPORT INFORMATION
  Report Type: Spontaneous
  Country: US (occurrence: US)
  Receive Date: 20140205
  Receipt Date: 20140205
  Transmission Date: 20141002
  Serious: No
  Sender: FDA-Public Use
  Company Number: US-PFIZER INC-2014031718

PATIENT
  Age: 53 Year
  Sex: Male
  Weight: 150 kg

DRUGS (2)
  1. DEPO-TESTOSTERONE [Suspect]
     Indication: ANDROGEN DEFICIENCY
     Dosage: 1 MG, WEEKLY
     Dates: start: 201309
  2. DEPO-TESTOSTERONE [Suspect]
     Dosage: 0.75 MG, WEEKLY
     Dates: start: 201312

REACTIONS (2)
  - Blood oestrogen increased [Unknown]
  - Blood testosterone increased [Unknown]
